FAERS Safety Report 9392369 (Version 1)
Quarter: 2013Q3

REPORT INFORMATION
  Report Type: Spontaneous
  Country: US (occurrence: None)
  Receive Date: 20130708
  Receipt Date: 20130708
  Transmission Date: 20140515
  Serious: Yes (Life-Threatening, Hospitalization, Disabling, Other)
  Sender: FDA-Public Use
  Company Number: None

PATIENT
  Age: 58 Year
  Sex: Male
  Weight: 81.65 kg

DRUGS (5)
  1. OXYCONTIN TABLETS [Suspect]
     Route: 048
     Dates: start: 2003, end: 2013
  2. MORPHINE [Concomitant]
  3. AMBIEN [Concomitant]
  4. ZOLOFT [Concomitant]
  5. ASPIRIN [Concomitant]

REACTIONS (5)
  - Drug withdrawal syndrome [None]
  - Product quality issue [None]
  - Road traffic accident [None]
  - Fall [None]
  - Economic problem [None]
